FAERS Safety Report 8502589-X (Version None)
Quarter: 2012Q3

REPORT INFORMATION
  Report Type: 
  Country: None (occurrence: None)
  Receive Date: 20120711
  Receipt Date: 20120627
  Transmission Date: 20120928
  Serious: Yes (Other)
  Sender: FDA-Public Use
  Company Number: JP-NAPPMUNDI-MAG-2012-0002218

PATIENT
  Age: 79 Year
  Sex: Female
  Weight: 60 kg

DRUGS (5)
  1. BUPRENORPHINE [Suspect]
     Indication: ANALGESIC THERAPY
     Dosage: 10 MCG, Q1H
     Route: 062
     Dates: start: 20120327, end: 20120604
  2. ARTZ [Concomitant]
     Indication: SPINAL OSTEOARTHRITIS
  3. BUPRENORPHINE [Suspect]
     Dosage: 5 MCG, Q1H
     Route: 062
     Dates: start: 20120313, end: 20120326
  4. BUPRENORPHINE [Suspect]
     Dosage: 5 MCG, Q1H
     Route: 062
     Dates: start: 20120605, end: 20120612
  5. ARTZ [Concomitant]
     Indication: OSTEOARTHRITIS
     Route: 042

REACTIONS (4)
  - DIZZINESS [None]
  - CONSTIPATION [None]
  - SOMNOLENCE [None]
  - FALL [None]
